FAERS Safety Report 9099281 (Version 1)
Quarter: 2013Q1

REPORT INFORMATION
  Report Type: Spontaneous
  Country: US (occurrence: US)
  Receive Date: 20130213
  Receipt Date: 20130213
  Transmission Date: 20140127
  Serious: No
  Sender: FDA-Public Use
  Company Number: US-ALLERGAN-1216953US

PATIENT
  Sex: Female

DRUGS (2)
  1. OZURDEX [Suspect]
     Indication: PRODUCT USED FOR UNKNOWN INDICATION
     Dosage: 0.7 MG, SINGLE
     Route: 031
     Dates: start: 20121115, end: 20121115
  2. CELLCEPT [Concomitant]
     Indication: GRANULOMATOSIS WITH POLYANGIITIS
     Dosage: 500 MG, UNK

REACTIONS (2)
  - Vitreous floaters [Unknown]
  - Irritability [Unknown]
